FAERS Safety Report 15216937 (Version 4)
Quarter: 2018Q3

REPORT INFORMATION
  Report Type: Report from Study
  Country: US (occurrence: US)
  Receive Date: 20180730
  Receipt Date: 20180907
  Transmission Date: 20181010
  Serious: Yes (Hospitalization, Other)
  Sender: FDA-Public Use
  Company Number: US-GILEAD-2018-0347793

PATIENT
  Age: 46 Year
  Sex: Male
  Weight: 84.81 kg

DRUGS (12)
  1. ADEMPAS [Concomitant]
     Active Substance: RIOCIGUAT
  2. INTELENCE [Concomitant]
     Active Substance: ETRAVIRINE
  3. PREZISTA [Concomitant]
     Active Substance: DARUNAVIR ETHANOLATE
  4. BUMEX [Concomitant]
     Active Substance: BUMETANIDE
  5. TIVICAY [Concomitant]
     Active Substance: DOLUTEGRAVIR SODIUM
     Indication: PULMONARY HYPERTENSION
  6. AMBRISENTAN [Suspect]
     Active Substance: AMBRISENTAN
     Indication: PULMONARY HYPERTENSION
     Dosage: 10 MG, QD
     Route: 065
     Dates: start: 20161110
  7. AMBRISENTAN [Suspect]
     Active Substance: AMBRISENTAN
     Indication: HIV INFECTION
  8. UPTRAVI [Concomitant]
     Active Substance: SELEXIPAG
  9. WARFARIN [Concomitant]
     Active Substance: WARFARIN
  10. TIVICAY [Concomitant]
     Active Substance: DOLUTEGRAVIR SODIUM
     Indication: HIV INFECTION
  11. REMODULIN [Suspect]
     Active Substance: TREPROSTINIL
     Indication: PULMONARY ARTERIAL HYPERTENSION
     Dosage: 2 NG/KG/MIN
     Route: 058
     Dates: start: 20180809
  12. COREG [Concomitant]
     Active Substance: CARVEDILOL

REACTIONS (12)
  - Nervousness [Unknown]
  - Weight decreased [Unknown]
  - Pulmonary arterial hypertension [Unknown]
  - Pain [Not Recovered/Not Resolved]
  - Dyspnoea exertional [Unknown]
  - Right ventricular failure [Unknown]
  - Weight increased [Recovering/Resolving]
  - Feeling jittery [Unknown]
  - Rash [Unknown]
  - Swelling [Recovering/Resolving]
  - Sleep disorder [Unknown]
  - Oedema peripheral [Recovered/Resolved]

NARRATIVE: CASE EVENT DATE: 20180711
